FAERS Safety Report 10192677 (Version 1)
Quarter: 2014Q2

REPORT INFORMATION
  Report Type: Spontaneous
  Country: DE (occurrence: DE)
  Receive Date: 20140523
  Receipt Date: 20140523
  Transmission Date: 20141212
  Serious: Yes (Hospitalization)
  Sender: FDA-Public Use
  Company Number: DE-BAYER-2014-075645

PATIENT
  Sex: 0

DRUGS (1)
  1. STIVARGA [Suspect]

REACTIONS (1)
  - Renal failure [None]
